FAERS Safety Report 9281198 (Version 1)
Quarter: 2013Q2

REPORT INFORMATION
  Report Type: Spontaneous
  Country: IT (occurrence: None)
  Receive Date: 20130502
  Receipt Date: 20130502
  Transmission Date: 20140414
  Serious: Yes (Life-Threatening)
  Sender: FDA-Public Use
  Company Number: FK201301295

PATIENT
  Age: 56 Year
  Sex: Male

DRUGS (1)
  1. CEFTRIAXON [Suspect]
     Indication: ANTIBIOTIC PROPHYLAXIS
     Dosage: 4 GM, 1 IN 1 D, INTRAVENOUS (NOT OTHERWISE SPECIFIED)?
     Route: 042
     Dates: start: 20130320, end: 20130323

REACTIONS (2)
  - Capillaritis [None]
  - Henoch-Schonlein purpura [None]
